FAERS Safety Report 9965403 (Version 1)
Quarter: 2014Q1

REPORT INFORMATION
  Report Type: Report from Study
  Country: US (occurrence: US)
  Receive Date: 20140305
  Receipt Date: 20140305
  Transmission Date: 20141002
  Serious: No
  Sender: FDA-Public Use
  Company Number: US-ABBVIE-13P-163-1125293-00

PATIENT
  Age: 56 Year
  Sex: Female
  Weight: 62.65 kg

DRUGS (5)
  1. HUMIRA [Suspect]
     Indication: PSORIASIS
     Dates: start: 20130718
  2. HUMIRA [Suspect]
     Indication: PSORIATIC ARTHROPATHY
  3. DYAZIDE [Concomitant]
     Indication: FLUID RETENTION
  4. ENJUVIA [Concomitant]
     Indication: MENOPAUSE
  5. FOLIC ACID [Concomitant]
     Indication: VITAMIN SUPPLEMENTATION

REACTIONS (1)
  - Injection site pain [Recovered/Resolved]
